FAERS Safety Report 7929791-X (Version None)
Quarter: 2011Q4

REPORT INFORMATION
  Report Type: 
  Country: None (occurrence: None)
  Receive Date: 20111121
  Receipt Date: 20111118
  Transmission Date: 20120403
  Serious: Yes (Death)
  Sender: FDA-Public Use
  Company Number: PHHY2010AU092660

PATIENT
  Sex: Male

DRUGS (6)
  1. ACETAMINOPHEN [Concomitant]
     Dosage: UNK UKN, UNK
  2. ZOLEDRONOC ACID [Suspect]
     Dosage: 5 MG,
     Route: 042
     Dates: start: 20091201
  3. ANTIARRHYTHMICS [Concomitant]
     Dosage: UNK UKN, UNK
  4. METOPROLOL TARTRATE [Concomitant]
     Dosage: UNK UKN, UNK
  5. CRESTOR [Concomitant]
     Dosage: UNK UKN, UNK
  6. ARICEPT [Concomitant]
     Dosage: UNK UKN, UNK

REACTIONS (2)
  - CACHEXIA [None]
  - DEMENTIA [None]
